FAERS Safety Report 6932117-1 (Version None)
Quarter: 2010Q3

REPORT INFORMATION
  Report Type: 
  Country: None (occurrence: None)
  Receive Date: 20100819
  Receipt Date: 20100809
  Transmission Date: 20110219
  Serious: Yes (Other)
  Sender: FDA-Public Use
  Company Number: A0874984A

PATIENT
  Sex: Female
  Weight: 65.3 kg

DRUGS (1)
  1. ELTROMBOPAG [Suspect]
     Indication: IDIOPATHIC THROMBOCYTOPENIC PURPURA
     Route: 048
     Dates: start: 20071221

REACTIONS (4)
  - DIPLOPIA [None]
  - EMBOLIC CEREBRAL INFARCTION [None]
  - MUSCULAR WEAKNESS [None]
  - PERONEAL NERVE PALSY [None]
